FAERS Safety Report 20224568 (Version 2)
Quarter: 2022Q1

REPORT INFORMATION
  Report Type: Spontaneous
  Country: US (occurrence: US)
  Receive Date: 20211223
  Receipt Date: 20220105
  Transmission Date: 20220423
  Serious: Yes (Hospitalization)
  Sender: FDA-Public Use
  Company Number: US-TEVA-2021-US-1989849

PATIENT
  Age: 48 Year
  Sex: Female

DRUGS (3)
  1. OXYCODONE [Suspect]
     Active Substance: OXYCODONE
     Indication: Pain
     Dosage: 10MG TO 20MG EVERY 4 HOURS AS NEEDED
     Route: 065
  2. HYDROMORPHONE [Suspect]
     Active Substance: HYDROMORPHONE
     Indication: Pain
     Route: 065
  3. FENTANYL [Suspect]
     Active Substance: FENTANYL
     Indication: Pain
     Dosage: 125 MICROG/H EVERY 72HRS
     Route: 062

REACTIONS (4)
  - Hyperaesthesia [Recovering/Resolving]
  - Drug ineffective [Unknown]
  - Accidental overdose [Unknown]
  - Medication error [Unknown]
